FAERS Safety Report 4419774-9 (Version None)
Quarter: 2004Q2

REPORT INFORMATION
  Report Type: 
  Country: None (occurrence: None)
  Receive Date: 20040622
  Receipt Date: 20030926
  Transmission Date: 20050107
  Serious: Yes (Death)
  Sender: FDA-Public Use
  Company Number: 348087

PATIENT
  Age: 41 Year
  Sex: Male

DRUGS (1)
  1. XELODA [Suspect]
     Indication: COLON CANCER
     Dosage: 2000 MG 2 PER DAY ORAL
     Route: 048
     Dates: start: 20030615, end: 20030922

REACTIONS (2)
  - COLON CANCER [None]
  - DISEASE PROGRESSION [None]
